FAERS Safety Report 5905819-3 (Version None)
Quarter: 2008Q4

REPORT INFORMATION
  Report Type: 
  Country: None (occurrence: None)
  Receive Date: 20081002
  Receipt Date: 20080925
  Transmission Date: 20090506
  Serious: Yes (Hospitalization)
  Sender: FDA-Public Use
  Company Number: B0539440A

PATIENT
  Age: 16 Year
  Sex: Female

DRUGS (2)
  1. IMIGRAN [Suspect]
     Indication: MIGRAINE
     Dosage: 10MG PER DAY
     Route: 045
  2. NO CONCURRENT MEDICATION [Concomitant]

REACTIONS (3)
  - DYSPNOEA [None]
  - MIGRAINE [None]
  - SYNCOPE [None]
